FAERS Safety Report 4382319-6 (Version None)
Quarter: 2004Q2

REPORT INFORMATION
  Report Type: 
  Country: None (occurrence: None)
  Receive Date: 20040621
  Receipt Date: 20040621
  Transmission Date: 20050107
  Serious: Yes (Other)
  Sender: FDA-Public Use
  Company Number: None

PATIENT
  Age: 45 Year
  Sex: Female
  Weight: 74.8435 kg

DRUGS (2)
  1. LIPITOR [Suspect]
     Indication: BLOOD CHOLESTEROL INCREASED
     Dosage: 20 MG 1 TIME ORAL
     Route: 048
     Dates: start: 19990221, end: 20040519
  2. LIPITOR [Suspect]
     Indication: BLOOD TRIGLYCERIDES INCREASED
     Dosage: 20 MG 1 TIME ORAL
     Route: 048
     Dates: start: 19990221, end: 20040519

REACTIONS (12)
  - ARTHRALGIA [None]
  - CONFUSIONAL STATE [None]
  - CONSTIPATION [None]
  - DECREASED ACTIVITY [None]
  - DEPRESSION [None]
  - FATIGUE [None]
  - HEADACHE [None]
  - HYPERHIDROSIS [None]
  - HYPERTENSION [None]
  - MUSCLE TWITCHING [None]
  - NAUSEA [None]
  - PAIN IN EXTREMITY [None]
